FAERS Safety Report 12318580 (Version 3)
Quarter: 2016Q3

REPORT INFORMATION
  Report Type: Spontaneous
  Country: US (occurrence: US)
  Receive Date: 20160429
  Receipt Date: 20160714
  Transmission Date: 20161109
  Serious: Yes (Hospitalization)
  Sender: FDA-Public Use
  Company Number: US-B.I. PHARMACEUTICALS,INC./RIDGEFIELD-2016-BI-25545BP

PATIENT
  Age: 46 Year
  Sex: Female
  Weight: 86.64 kg

DRUGS (1)
  1. JARDIANCE [Suspect]
     Active Substance: EMPAGLIFLOZIN
     Indication: TYPE 2 DIABETES MELLITUS
     Dosage: 25 MG
     Route: 048
     Dates: start: 201601, end: 20160502

REACTIONS (4)
  - Sepsis [Recovered/Resolved]
  - Pyelonephritis [Recovered/Resolved]
  - Acidosis [Recovered/Resolved]
  - Urinary tract infection [Unknown]

NARRATIVE: CASE EVENT DATE: 20160418
